FAERS Safety Report 24234995 (Version 1)
Quarter: 2024Q3

REPORT INFORMATION
  Report Type: Spontaneous
  Country: US (occurrence: None)
  Receive Date: 20240821
  Receipt Date: 20240821
  Transmission Date: 20241016
  Serious: Yes (Hospitalization)
  Sender: Public
  Company Number: None

PATIENT
  Sex: Male
  Weight: 74.4 kg

DRUGS (3)
  1. FLUOROURACIL [Suspect]
     Active Substance: FLUOROURACIL
  2. LEUCOVORIN CALCIUM [Concomitant]
     Active Substance: LEUCOVORIN CALCIUM
  3. ELOXATIN [Concomitant]
     Active Substance: OXALIPLATIN

REACTIONS (11)
  - Confusional state [None]
  - Neutropenia [None]
  - Fatigue [None]
  - Nausea [None]
  - Embolism [None]
  - Peripheral swelling [None]
  - Disorientation [None]
  - Drug intolerance [None]
  - Failure to thrive [None]
  - Anaemia [None]
  - Thrombophlebitis [None]

NARRATIVE: CASE EVENT DATE: 20240819
